FAERS Safety Report 15315653 (Version 1)
Quarter: 2018Q3

REPORT INFORMATION
  Report Type: Spontaneous
  Country: GB (occurrence: GB)
  Receive Date: 20180824
  Receipt Date: 20180824
  Transmission Date: 20181010
  Serious: Yes (Hospitalization, Other)
  Sender: FDA-Public Use
  Company Number: PHHY2018GB077377

PATIENT
  Age: 78 Year
  Sex: Male

DRUGS (4)
  1. METHOTREXATE. [Suspect]
     Active Substance: METHOTREXATE
     Indication: RHEUMATOID ARTHRITIS
     Route: 065
  2. VALGANCICLOVIR. [Suspect]
     Active Substance: VALGANCICLOVIR
     Indication: CYTOMEGALOVIRUS CHORIORETINITIS
     Dosage: 450 MG, UNK
     Route: 048
  3. SULFAMETHOXAZOLE [Suspect]
     Active Substance: SULFAMETHOXAZOLE
     Indication: PNEUMOCYSTIS JIROVECII PNEUMONIA
     Route: 065
  4. TOFACITINIB [Suspect]
     Active Substance: TOFACITINIB
     Indication: RHEUMATOID ARTHRITIS
     Route: 065

REACTIONS (14)
  - Vitreous opacities [Recovered/Resolved]
  - Pancytopenia [Recovered/Resolved]
  - Platelet count decreased [Recovered/Resolved]
  - Polymerase chain reaction positive [Recovered/Resolved]
  - Fatigue [Unknown]
  - Pyrexia [Unknown]
  - Cytomegalovirus chorioretinitis [Recovered/Resolved]
  - Pneumocystis jirovecii pneumonia [Unknown]
  - Cytomegalovirus test positive [Recovered/Resolved]
  - Necrotising retinitis [Recovered/Resolved]
  - White blood cell count decreased [Recovered/Resolved]
  - Immune recovery uveitis [Recovering/Resolving]
  - Haemoglobin decreased [Recovered/Resolved]
  - Visual impairment [Recovered/Resolved]
